FAERS Safety Report 7714956-2 (Version None)
Quarter: 2011Q3

REPORT INFORMATION
  Report Type: 
  Country: None (occurrence: None)
  Receive Date: 20110829
  Receipt Date: 20110823
  Transmission Date: 20111222
  Serious: Yes (Other)
  Sender: FDA-Public Use
  Company Number: US-B.I. PHARMACEUTICALS,INC./RIDGEFIELD-2011-BP-20757PF

PATIENT
  Sex: Female

DRUGS (6)
  1. BROMOCRIPTINE MESYLATE [Concomitant]
     Dates: start: 20110601, end: 20110601
  2. ALBUTEROL SULFATE AUTOHALER [Concomitant]
  3. LANTUS [Suspect]
     Indication: TYPE 2 DIABETES MELLITUS
     Dosage: 5 U
     Route: 058
     Dates: start: 20110805
  4. XANAX [Concomitant]
  5. SPIRIVA [Suspect]
     Indication: ASTHMA
     Route: 065
     Dates: start: 20110801
  6. TOPROL-XL [Suspect]
     Route: 065
     Dates: start: 20110801

REACTIONS (7)
  - PYREXIA [None]
  - JOINT INJURY [None]
  - TREMOR [None]
  - BLOOD GLUCOSE INCREASED [None]
  - FEELING HOT [None]
  - MALAISE [None]
  - INFLUENZA LIKE ILLNESS [None]
